FAERS Safety Report 17724549 (Version 1)
Quarter: 2020Q2

REPORT INFORMATION
  Report Type: Report from Study
  Country: US (occurrence: US)
  Receive Date: 20200429
  Receipt Date: 20200429
  Transmission Date: 20200714
  Serious: Yes (Hospitalization)
  Sender: FDA-Public Use
  Company Number: US-EISAI MEDICAL RESEARCH-EC-2018-043157

PATIENT
  Age: 52 Year
  Sex: Male
  Weight: 88.4 kg

DRUGS (9)
  1. LENVIMA [Suspect]
     Active Substance: LENVATINIB
     Route: 048
     Dates: start: 2019, end: 20200129
  2. LENVIMA [Suspect]
     Active Substance: LENVATINIB
     Indication: THYROID CANCER METASTATIC
     Route: 048
     Dates: start: 20180711, end: 201903
  3. LEVOTHYROXINE. [Concomitant]
     Active Substance: LEVOTHYROXINE
  4. LENVIMA [Suspect]
     Active Substance: LENVATINIB
     Route: 048
     Dates: start: 20200229, end: 20200407
  5. LENVIMA [Suspect]
     Active Substance: LENVATINIB
     Route: 048
     Dates: start: 20200422
  6. CALCIUM PLUS D [Concomitant]
     Active Substance: CALCIUM\VITAMIN D
  7. PAROXETINE. [Concomitant]
     Active Substance: PAROXETINE
  8. LOSARTAN. [Concomitant]
     Active Substance: LOSARTAN
  9. NORCO [Concomitant]
     Active Substance: ACETAMINOPHEN\HYDROCODONE BITARTRATE

REACTIONS (10)
  - Blood pressure increased [Not Recovered/Not Resolved]
  - Fatigue [Unknown]
  - Headache [Not Recovered/Not Resolved]
  - Decreased appetite [Not Recovered/Not Resolved]
  - Weight decreased [Not Recovered/Not Resolved]
  - Abdominal discomfort [Not Recovered/Not Resolved]
  - Peripheral swelling [Unknown]
  - Palmar-plantar erythrodysaesthesia syndrome [Not Recovered/Not Resolved]
  - Cellulitis [Unknown]
  - Taste disorder [Not Recovered/Not Resolved]

NARRATIVE: CASE EVENT DATE: 201807
